FAERS Safety Report 7044942-X (Version None)
Quarter: 2010Q4

REPORT INFORMATION
  Report Type: 
  Country: None (occurrence: None)
  Receive Date: 20101014
  Receipt Date: 20101004
  Transmission Date: 20110411
  Serious: Yes (Other)
  Sender: FDA-Public Use
  Company Number: DE-SANOFI-AVENTIS-2010SA059414

PATIENT
  Sex: Male

DRUGS (2)
  1. MULTAQ [Suspect]
     Indication: PRODUCT USED FOR UNKNOWN INDICATION
     Route: 065
     Dates: start: 20100201, end: 20100901
  2. BISOPROLOL [Concomitant]
     Indication: PRODUCT USED FOR UNKNOWN INDICATION
     Dosage: DOSAGE: 1/4 TABLET
     Route: 048

REACTIONS (6)
  - ANGINA PECTORIS [None]
  - CHEST PAIN [None]
  - DRUG INEFFECTIVE [None]
  - EYE SWELLING [None]
  - HEADACHE [None]
  - OEDEMA [None]
